FAERS Safety Report 12880622 (Version 1)
Quarter: 2016Q4

REPORT INFORMATION
  Report Type: Spontaneous
  Country: US (occurrence: US)
  Receive Date: 20161021
  Receipt Date: 20161021
  Transmission Date: 20170207
  Serious: No
  Sender: FDA-Public Use
  Company Number: None

PATIENT
  Sex: Male

DRUGS (1)
  1. NINLARO [Suspect]
     Active Substance: IXAZOMIB
     Dosage: 2.3MG DAY 1, 8, 15 OF 28 DAY CYCLE BY MOUTH
     Route: 048
     Dates: start: 20160628, end: 20161018

REACTIONS (2)
  - Oedema [None]
  - Gastrointestinal inflammation [None]
